FAERS Safety Report 7235235-6 (Version None)
Quarter: 2011Q1

REPORT INFORMATION
  Report Type: 
  Country: None (occurrence: None)
  Receive Date: 20110120
  Receipt Date: 20110110
  Transmission Date: 20110831
  Serious: Yes (Hospitalization)
  Sender: FDA-Public Use
  Company Number: US-KINGPHARMUSA00001-K201100054

PATIENT
  Sex: Male
  Weight: 72 kg

DRUGS (8)
  1. ALTACE [Suspect]
     Dosage: 5 MG, UNK
     Route: 048
     Dates: end: 20080601
  2. PREDNISONE [Concomitant]
     Dosage: UNK
     Dates: start: 19970101
  3. TACROLIMUS [Concomitant]
  4. IRBESARTAN [Suspect]
     Dosage: 50 MG, UNK
     Dates: end: 20080601
  5. ROSUVASTATIN CALCIUM [Concomitant]
  6. MYCOPHENOLATE MOFETIL [Concomitant]
     Dosage: UNK
     Dates: start: 19970101
  7. FUROSEMIDE [Concomitant]
  8. ARANESP [Suspect]
     Indication: RENAL FAILURE
     Dosage: UNK
     Route: 042
     Dates: start: 20071205, end: 20080610

REACTIONS (1)
  - APLASIA PURE RED CELL [None]
